FAERS Safety Report 5740684-9 (Version None)
Quarter: 2008Q2

REPORT INFORMATION
  Report Type: 
  Country: None (occurrence: None)
  Receive Date: 20080516
  Receipt Date: 20080507
  Transmission Date: 20081010
  Serious: Yes (Other)
  Sender: FDA-Public Use
  Company Number: FR-AMGEN-US277799

PATIENT
  Sex: Female

DRUGS (3)
  1. ENBREL [Suspect]
     Indication: DRUG USE FOR UNKNOWN INDICATION
     Route: 058
     Dates: start: 20071023, end: 20080101
  2. KETOPROFEN [Concomitant]
     Dosage: 2 DOSES TOTAL DAILY
     Route: 048
     Dates: end: 20080101
  3. KETOPROFEN [Concomitant]
     Dosage: UNKNOWN
     Route: 048
     Dates: start: 20080101

REACTIONS (1)
  - FEBRILE NEUTROPENIA [None]
